FAERS Safety Report 8021445-7 (Version None)
Quarter: 2012Q1

REPORT INFORMATION
  Report Type: 
  Country: None (occurrence: None)
  Receive Date: 20120104
  Receipt Date: 20120102
  Transmission Date: 20120608
  Serious: Yes (Hospitalization)
  Sender: FDA-Public Use
  Company Number: DE-SANOFI-AVENTIS-2009SA009201

PATIENT
  Age: 63 Year
  Sex: Female
  Weight: 118 kg

DRUGS (8)
  1. CLEMASTINE FUMARATE [Concomitant]
     Route: 042
     Dates: start: 20091127, end: 20091127
  2. DOCETAXEL [Suspect]
     Route: 041
     Dates: start: 20091127, end: 20091127
  3. EMEND [Concomitant]
     Indication: PROPHYLAXIS
     Route: 042
     Dates: start: 20091127, end: 20091130
  4. FORTECORTIN [Concomitant]
     Indication: PROPHYLAXIS
     Route: 042
     Dates: start: 20091127, end: 20091128
  5. RAMIPRIL [Concomitant]
     Route: 048
  6. DOCETAXEL [Suspect]
     Indication: BREAST CANCER
     Route: 041
     Dates: start: 20091002, end: 20091002
  7. KEVATRIL [Concomitant]
     Indication: PROPHYLAXIS
     Route: 042
     Dates: start: 20091127, end: 20091127
  8. RANITIDINE [Concomitant]
     Indication: PROPHYLAXIS
     Route: 042
     Dates: start: 20091127, end: 20091127

REACTIONS (2)
  - LUMBAR VERTEBRAL FRACTURE [None]
  - BACK PAIN [None]
